FAERS Safety Report 9513485 (Version 1)
Quarter: 2013Q1

REPORT INFORMATION
  Report Type: Spontaneous
  Country: US (occurrence: None)
  Receive Date: 20130305
  Receipt Date: 20130305
  Transmission Date: 20140127
  Serious: Yes (Other)
  Sender: FDA-Public Use
  Company Number: 163-21880-1210963

PATIENT
  Age: 67 Year
  Sex: Female
  Weight: 69.4 kg

DRUGS (9)
  1. REVLIMID (LENALIDOMIDE) (CAPSULES) [Suspect]
     Indication: PLASMA CELL MYELOMA
     Route: 048
     Dates: start: 20110923
  2. BAYER ASPIRIN (ACETYLSALICYLIC ACID) (UNKNOWN) [Concomitant]
  3. CALCIUM (CALCIUM) (UNKNOWN) [Concomitant]
  4. COSOPT (COSOPT) (UNKNOWN) [Concomitant]
  5. DIOVAN (VALSARTAN) (UNKNOWN) [Concomitant]
  6. IMODIUM A-D (LPERAMIDE HYDROCHLORIDE) (UNKNOWN) [Concomitant]
  7. MULTIVITAMIN (MULTIVITAMINS) (UNKNOWN) [Concomitant]
  8. POTASSIUM (POTASSIUM) (UNKNOWN) [Concomitant]
  9. PRILOSEC (OMEPRAZOLE) (UNKNOWN) [Concomitant]

REACTIONS (1)
  - Conjunctivitis infective [None]
